FAERS Safety Report 15751382 (Version 1)
Quarter: 2018Q4

REPORT INFORMATION
  Report Type: Spontaneous
  Country: GB (occurrence: GB)
  Receive Date: 20181221
  Receipt Date: 20181221
  Transmission Date: 20190205
  Serious: Yes (Life-Threatening, Hospitalization, Other)
  Sender: FDA-Public Use
  Company Number: GB-AMGEN-GBRSP2018179509

PATIENT
  Age: 68 Year
  Sex: Female

DRUGS (4)
  1. PROLIA [Suspect]
     Active Substance: DENOSUMAB
     Indication: OSTEOPOROSIS POSTMENOPAUSAL
     Dosage: 60 MG/ML, Q6MO
     Route: 058
     Dates: start: 20180701
  2. INVITA D3 [Concomitant]
     Dosage: UNK
  3. QV [Concomitant]
     Dosage: UNK
  4. DIPROBASE [Concomitant]
     Active Substance: CHLOROCRESOL
     Dosage: UNK

REACTIONS (3)
  - Confusional state [Recovered/Resolved]
  - Generalised tonic-clonic seizure [Unknown]
  - Meningitis bacterial [Not Recovered/Not Resolved]

NARRATIVE: CASE EVENT DATE: 20181126
